FAERS Safety Report 9491913 (Version 3)
Quarter: 2013Q4

REPORT INFORMATION
  Report Type: Report from Study
  Country: IL (occurrence: IL)
  Receive Date: 20130830
  Receipt Date: 20131030
  Transmission Date: 20140711
  Serious: Yes (Death, Hospitalization)
  Sender: FDA-Public Use
  Company Number: IL-ROCHE-1204324

PATIENT
  Age: 48 Year
  Sex: Female
  Weight: 75 kg

DRUGS (11)
  1. TRASTUZUMAB EMTANSINE [Suspect]
     Indication: BREAST CANCER METASTATIC
     Dosage: PATIENT RECEIVED 9 CYCLES IN TOTAL
     Route: 065
     Dates: end: 20130709
  2. PRAVASTATIN [Concomitant]
     Indication: BREAST CANCER METASTATIC
  3. VINORELBINE [Concomitant]
     Route: 065
     Dates: start: 200305
  4. XELODA [Concomitant]
     Route: 065
     Dates: start: 200601
  5. PACLITAXEL [Concomitant]
     Route: 065
     Dates: start: 200706
  6. LAPATINIB [Concomitant]
     Route: 065
     Dates: start: 200706
  7. YONDELIS [Concomitant]
     Route: 065
     Dates: start: 200805
  8. GEMZAR [Concomitant]
     Route: 065
     Dates: start: 200807
  9. CISPLATIN [Concomitant]
     Route: 065
     Dates: start: 200807
  10. DOCETAXEL [Concomitant]
     Route: 065
     Dates: start: 200906, end: 200912
  11. DOXIL (ISRAEL) [Concomitant]
     Route: 065
     Dates: start: 201101, end: 201101

REACTIONS (6)
  - Renal failure acute [Fatal]
  - Sepsis [Fatal]
  - Bile duct obstruction [Not Recovered/Not Resolved]
  - Haematoma [Recovered/Resolved]
  - Epistaxis [Recovered/Resolved]
  - Disease progression [Unknown]
